FAERS Safety Report 9737006 (Version 2)
Quarter: 2013Q4

REPORT INFORMATION
  Report Type: Spontaneous
  Country: US (occurrence: US)
  Receive Date: 20131206
  Receipt Date: 20131206
  Transmission Date: 20140711
  Serious: No
  Sender: FDA-Public Use
  Company Number: US-GILEAD-2009-0023162

PATIENT
  Age: 78 Year
  Sex: Female

DRUGS (8)
  1. LETAIRIS [Suspect]
     Indication: PULMONARY ARTERIAL HYPERTENSION
     Route: 048
     Dates: start: 20090413
  2. LOTREL [Concomitant]
  3. SINGULAIR [Concomitant]
  4. BACTRIM [Concomitant]
  5. METFORMIN [Concomitant]
  6. HUMIRA [Concomitant]
  7. LYRICA [Concomitant]
  8. NEXIUM [Concomitant]

REACTIONS (2)
  - Oedema [Unknown]
  - Oedema peripheral [Not Recovered/Not Resolved]
